FAERS Safety Report 6694182-9 (Version None)
Quarter: 2010Q2

REPORT INFORMATION
  Report Type: 
  Country: None (occurrence: None)
  Receive Date: 20100423
  Receipt Date: 20100413
  Transmission Date: 20101027
  Serious: Yes (Hospitalization, Other)
  Sender: FDA-Public Use
  Company Number: US-JNJFOC-20091103072

PATIENT
  Sex: Female
  Weight: 78 kg

DRUGS (29)
  1. REMICADE [Suspect]
     Indication: CROHN'S DISEASE
     Route: 042
  2. REMICADE [Suspect]
     Dosage: 29 INFUSIONS
     Route: 042
  3. REMICADE [Suspect]
     Route: 042
  4. REMICADE [Suspect]
     Dosage: 2 INFUSIONS
     Route: 042
  5. REMICADE [Suspect]
     Dosage: 9 INFUSIONS
     Route: 042
  6. REMICADE [Suspect]
     Dosage: 3 INFUSIONS
     Route: 042
  7. MERCAPTOPURINE [Concomitant]
  8. SULFASALAZINE [Concomitant]
  9. SIMVASTATIN [Concomitant]
  10. SKELAXIN [Concomitant]
  11. TRAZODONE HCL [Concomitant]
  12. ULTRAM [Concomitant]
  13. PREDNISONE [Concomitant]
  14. FOSAMAX [Concomitant]
  15. CATAPRES-TTS-1 [Concomitant]
  16. ENABLEX [Concomitant]
  17. FENTANYL [Concomitant]
     Route: 061
  18. HYDROMORPHONE HCL [Concomitant]
     Route: 050
  19. CLONAZEPAM [Concomitant]
  20. LUNESTA [Concomitant]
  21. LYRICA [Concomitant]
  22. MIRALAX [Concomitant]
     Dosage: DOSE 17 GRAMS BID
  23. PROVIGIL [Concomitant]
  24. PROZAC [Concomitant]
  25. REQUIP [Concomitant]
  26. FUROSEMIDE [Concomitant]
  27. POTASSIUM CHLORIDE [Concomitant]
     Dosage: DOSE 1 TABLESPOON DAILY
  28. ARANESP [Concomitant]
  29. RESPERAL [Concomitant]

REACTIONS (5)
  - CELLULITIS [None]
  - CONFUSIONAL STATE [None]
  - MYELODYSPLASTIC SYNDROME [None]
  - PANCYTOPENIA [None]
  - SEPSIS [None]
